FAERS Safety Report 11055922 (Version 1)
Quarter: 2015Q2

REPORT INFORMATION
  Report Type: Spontaneous
  Country: ES (occurrence: ES)
  Receive Date: 20150422
  Receipt Date: 20150422
  Transmission Date: 20150821
  Serious: Yes (Hospitalization)
  Sender: FDA-Public Use
  Company Number: ES-INCYTE CORPORATION-2015IN001570

PATIENT
  Sex: Male

DRUGS (1)
  1. JAKAFI [Suspect]
     Active Substance: RUXOLITINIB
     Indication: MYELOFIBROSIS
     Dosage: 15 MG, Q 12H
     Route: 048
     Dates: start: 20150316

REACTIONS (1)
  - Haematoma [Not Recovered/Not Resolved]

NARRATIVE: CASE EVENT DATE: 201503
